FAERS Safety Report 9660179 (Version 2)
Quarter: 2014Q1

REPORT INFORMATION
  Report Type: Spontaneous
  Country: IT (occurrence: IT)
  Receive Date: 20131031
  Receipt Date: 20140102
  Transmission Date: 20141002
  Serious: Yes (Hospitalization)
  Sender: FDA-Public Use
  Company Number: IT-SA-2013SA107671

PATIENT
  Age: 66 Year
  Sex: Female

DRUGS (8)
  1. APROVEL [Suspect]
     Indication: HYPERTENSION
     Route: 048
     Dates: start: 20130401, end: 20130903
  2. KANRENOL [Suspect]
     Indication: HYPERTENSION
     Route: 048
     Dates: start: 20130813, end: 20130903
  3. ASA [Concomitant]
     Route: 048
     Dates: end: 20130903
  4. METFORMIN HYDROCHLORIDE [Concomitant]
     Indication: DIABETES MELLITUS
     Route: 048
     Dates: start: 20130903
  5. SOLOSA [Concomitant]
     Indication: DIABETES MELLITUS
     Route: 048
     Dates: end: 20130903
  6. COMPETACT [Concomitant]
     Indication: DIABETES MELLITUS
     Dosage: 2 POSOLOGICAL UNIT
     Route: 048
     Dates: start: 20130903
  7. TOTALIP [Concomitant]
     Indication: DYSLIPIDAEMIA
     Route: 048
     Dates: start: 20130903
  8. LYRICA [Concomitant]
     Route: 048
     Dates: end: 20130903

REACTIONS (2)
  - Acidosis hyperchloraemic [Recovering/Resolving]
  - Hyperkalaemia [Recovering/Resolving]
